FAERS Safety Report 5079852-0 (Version None)
Quarter: 2006Q3

REPORT INFORMATION
  Report Type: 
  Country: None (occurrence: None)
  Receive Date: 20060815
  Receipt Date: 20060807
  Transmission Date: 20061208
  Serious: Yes (Other)
  Sender: FDA-Public Use
  Company Number: PHEH2006US10011

PATIENT
  Age: 66 Year
  Sex: Female

DRUGS (2)
  1. ZELNORM [Suspect]
     Indication: IRRITABLE BOWEL SYNDROME
     Dates: start: 20060201
  2. NAPROXEN [Concomitant]

REACTIONS (2)
  - ASTHENIA [None]
  - DIARRHOEA [None]
